FAERS Safety Report 25465350 (Version 2)
Quarter: 2025Q2

REPORT INFORMATION
  Report Type: Report from Study
  Country: CA (occurrence: CA)
  Receive Date: 20250622
  Receipt Date: 20250625
  Transmission Date: 20250716
  Serious: Yes (Other)
  Sender: JOHNSON AND JOHNSON
  Company Number: CA-JNJFOC-20250511077

PATIENT
  Age: 53 Year
  Sex: Male

DRUGS (2)
  1. REMICADE [Suspect]
     Active Substance: INFLIXIMAB
     Indication: Psoriatic arthropathy
     Route: 041
     Dates: start: 20150617
  2. REMICADE [Suspect]
     Active Substance: INFLIXIMAB
     Route: 041
     Dates: start: 20150915

REACTIONS (9)
  - Prostatomegaly [Unknown]
  - Pyrexia [Unknown]
  - Haematuria [Recovered/Resolved]
  - Bladder spasm [Recovered/Resolved]
  - Back pain [Unknown]
  - Dysuria [Recovered/Resolved]
  - Renal disorder [Unknown]
  - Bacterial test positive [Recovered/Resolved]
  - Device related infection [Unknown]

NARRATIVE: CASE EVENT DATE: 20250501
